FAERS Safety Report 9342676 (Version 4)
Quarter: 2014Q2

REPORT INFORMATION
  Report Type: Report from Study
  Country: FR (occurrence: FR)
  Receive Date: 20130611
  Receipt Date: 20140627
  Transmission Date: 20141212
  Serious: Yes (Hospitalization, Other)
  Sender: FDA-Public Use
  Company Number: FR-BAYER-2013-068217

PATIENT
  Age: 46 Year
  Sex: Female
  Weight: 80 kg

DRUGS (10)
  1. REGORAFENIB [Suspect]
     Indication: COLORECTAL CANCER METASTATIC
     Dosage: DAILY DOSE 160 MG
     Route: 048
     Dates: start: 20130326, end: 20130410
  2. REGORAFENIB [Suspect]
     Indication: COLORECTAL CANCER METASTATIC
     Dosage: DAILY DOSE 80 MG
     Route: 048
     Dates: start: 20130506, end: 20130523
  3. REGORAFENIB [Suspect]
     Indication: COLORECTAL CANCER METASTATIC
     Dosage: DAILY DOSE 120 MG
     Route: 048
     Dates: start: 20130529
  4. REGORAFENIB [Suspect]
     Indication: COLORECTAL CANCER METASTATIC
     Dosage: 120MG/DAY
     Dates: start: 20130628
  5. REGORAFENIB [Suspect]
     Indication: COLORECTAL CANCER METASTATIC
     Dosage: 160 MG/DAY
     Dates: start: 20130904, end: 20131010
  6. REGORAFENIB [Suspect]
     Indication: COLORECTAL CANCER METASTATIC
     Dosage: 160 MG/DAY
     Dates: start: 20131011
  7. COVERAM [Concomitant]
     Indication: HYPERTENSION
     Dosage: 5 MG, QD
     Route: 048
     Dates: start: 20130529
  8. INEXIUM [Concomitant]
     Indication: PROPHYLAXIS
     Dosage: DAILY DOSE 40 MG, INTERMITTEND, AS NEEDED
     Route: 048
  9. METEOSPASMYL [Concomitant]
     Indication: ABDOMINAL DISTENSION
     Dosage: DAILY DOSE 3 DF, INTERMITTEND AS NEEDED
     Route: 048
  10. HUMALOG [INSULIN] [Concomitant]
     Indication: DIABETES MELLITUS
     Dosage: UNK
     Route: 058

REACTIONS (6)
  - Toxic skin eruption [Not Recovered/Not Resolved]
  - Palmar-plantar erythrodysaesthesia syndrome [Not Recovered/Not Resolved]
  - Toxic skin eruption [Not Recovered/Not Resolved]
  - Hypertension [None]
  - Erythema [Recovered/Resolved]
  - Erythema of eyelid [Recovered/Resolved]
